FAERS Safety Report 9162564 (Version 1)
Quarter: 2013Q1

REPORT INFORMATION
  Report Type: Spontaneous
  Country: US (occurrence: US)
  Receive Date: 20130314
  Receipt Date: 20130314
  Transmission Date: 20140127
  Serious: Yes (Hospitalization, Other)
  Sender: FDA-Public Use
  Company Number: US-JNJFOC-20100803486

PATIENT
  Age: 51 Year
  Sex: Female

DRUGS (3)
  1. LEVAQUIN [Suspect]
     Indication: NASAL INFLAMMATION
     Route: 048
     Dates: start: 20010831
  2. LEVAQUIN [Suspect]
     Indication: BACTERIAL INFECTION
     Route: 048
     Dates: start: 20010831
  3. PREDNISONE [Suspect]
     Indication: PRODUCT USED FOR UNKNOWN INDICATION
     Route: 048

REACTIONS (5)
  - Rotator cuff syndrome [Recovered/Resolved]
  - Muscle rupture [Recovering/Resolving]
  - Rotator cuff syndrome [Not Recovered/Not Resolved]
  - Rotator cuff syndrome [Unknown]
  - Tendonitis [Unknown]
